FAERS Safety Report 6738749-8 (Version None)
Quarter: 2010Q2

REPORT INFORMATION
  Report Type: 
  Country: None (occurrence: None)
  Receive Date: 20100524
  Receipt Date: 20100520
  Transmission Date: 20101027
  Serious: Yes (Other)
  Sender: FDA-Public Use
  Company Number: US-ELI_LILLY_AND_COMPANY-US201003004701

PATIENT
  Sex: Male
  Weight: 93.878 kg

DRUGS (14)
  1. PRASUGREL HYDROCHLORIDE [Suspect]
     Indication: ACUTE CORONARY SYNDROME
     Dosage: UNK, UNK
     Route: 048
     Dates: start: 20100217, end: 20100407
  2. PRASUGREL HYDROCHLORIDE [Suspect]
     Dates: start: 20100409
  3. ASPIRIN [Concomitant]
     Dosage: 325 MG, UNK
     Dates: start: 20100215, end: 20100216
  4. ASPIRIN [Concomitant]
     Dosage: 81 MG, UNK
     Dates: start: 20100217
  5. ISOSORBIDE DINITRATE [Concomitant]
     Indication: ANGINA PECTORIS
     Dates: start: 20100217
  6. TOPROL-XL [Concomitant]
     Indication: HYPERTENSION
     Dates: start: 20100217
  7. INSULIN DETEMIR [Concomitant]
     Indication: DIABETES MELLITUS
     Dates: start: 20030101
  8. EFFEXOR [Concomitant]
     Indication: DEPRESSION
     Dates: start: 20060101
  9. CRESTOR [Concomitant]
     Indication: HYPERLIPIDAEMIA
     Dates: start: 20090101
  10. SINGULAIR [Concomitant]
     Indication: ASTHMA
     Dates: start: 20030101
  11. NOVOLOG [Concomitant]
     Indication: DIABETES MELLITUS
     Dates: start: 20030101
  12. XOPENEX [Concomitant]
     Indication: ASTHMA
     Dates: start: 20030101
  13. LUNESTA [Concomitant]
     Indication: PROPHYLAXIS
     Dates: start: 20080101
  14. NITROGLYCERIN [Concomitant]
     Indication: ANGINA PECTORIS
     Route: 060
     Dates: start: 20000101

REACTIONS (1)
  - HAEMORRHAGE [None]
